FAERS Safety Report 8472390-4 (Version None)
Quarter: 2012Q2

REPORT INFORMATION
  Report Type: 
  Country: None (occurrence: None)
  Receive Date: 20120627
  Receipt Date: 20120613
  Transmission Date: 20120825
  Serious: Yes (Death, Hospitalization)
  Sender: FDA-Public Use
  Company Number: JP-ACTELION-A-CH2011-56207

PATIENT
  Age: 25 Year
  Sex: Male
  Weight: 45.5 kg

DRUGS (14)
  1. ARTANE [Concomitant]
  2. LOPERAMIDE HYDROCHLORIDE [Concomitant]
  3. CYANOCOBALAMIN [Concomitant]
  4. MIGLUSTAT [Suspect]
     Indication: NIEMANN-PICK DISEASE
     Dosage: UNK , UNK
     Route: 048
     Dates: start: 20110210, end: 20111014
  5. MIGLUSTAT [Suspect]
     Dosage: 100 MG, TID
     Route: 048
     Dates: start: 20111024, end: 20120214
  6. TEGRETOL [Concomitant]
  7. MIGLUSTAT [Suspect]
     Dosage: 100 MG, TID
     Route: 048
     Dates: start: 20120301
  8. PHENYTOIN [Concomitant]
  9. LAMICTAL [Concomitant]
  10. LEVOTHYROXINE SODIUM [Concomitant]
  11. PARLODEL [Concomitant]
  12. DANTRIUM [Concomitant]
  13. BIO-THREE [Concomitant]
  14. MIYA BM [Concomitant]

REACTIONS (8)
  - NIEMANN-PICK DISEASE [None]
  - PNEUMONIA [None]
  - COUGH [None]
  - INCREASED UPPER AIRWAY SECRETION [None]
  - CONDITION AGGRAVATED [None]
  - RHINORRHOEA [None]
  - INTERSTITIAL LUNG DISEASE [None]
  - PYREXIA [None]
